FAERS Safety Report 6915674-0 (Version None)
Quarter: 2010Q3

REPORT INFORMATION
  Report Type: 
  Country: None (occurrence: None)
  Receive Date: 20100810
  Receipt Date: 20100802
  Transmission Date: 20110219
  Serious: Yes (Death, Hospitalization)
  Sender: FDA-Public Use
  Company Number: US-JNJFOC-20100406741

PATIENT
  Sex: Female

DRUGS (7)
  1. TYLENOL (CAPLET) [Suspect]
     Route: 048
  2. TYLENOL (CAPLET) [Suspect]
     Indication: PAIN
     Route: 048
  3. LASIX [Concomitant]
     Indication: CARDIAC FAILURE
     Route: 065
  4. BENICAR [Concomitant]
     Indication: HYPERTENSION
     Route: 065
  5. CALCIUM [Concomitant]
     Indication: OSTEOPOROSIS
     Route: 065
  6. TOPROL-XL [Concomitant]
     Indication: HYPERTENSION
     Route: 065
  7. VERAPAMIL [Concomitant]
     Indication: HYPERTENSION
     Route: 065

REACTIONS (2)
  - GASTRIC PERFORATION [None]
  - PRODUCT QUALITY ISSUE [None]
